FAERS Safety Report 6137644-5 (Version None)
Quarter: 2009Q1

REPORT INFORMATION
  Report Type: 
  Country: None (occurrence: None)
  Receive Date: 20090331
  Receipt Date: 20090323
  Transmission Date: 20090719
  Serious: Yes (Other)
  Sender: FDA-Public Use
  Company Number: US-JNJFOC-20090305897

PATIENT
  Sex: Male
  Weight: 79.38 kg

DRUGS (13)
  1. FENTANYL TRANSDERMAL SYSTEM [Suspect]
     Indication: OSTEOPOROSIS
     Route: 062
  2. FENTANYL TRANSDERMAL SYSTEM [Suspect]
     Indication: NERVE INJURY
     Route: 062
  3. FENTANYL TRANSDERMAL SYSTEM [Suspect]
     Indication: NECK PAIN
     Route: 062
  4. FENTANYL TRANSDERMAL SYSTEM [Suspect]
     Indication: MUSCULOSKELETAL PAIN
     Route: 062
  5. FENTANYL TRANSDERMAL SYSTEM [Suspect]
     Indication: PAIN IN EXTREMITY
     Route: 062
  6. FENTANYL TRANSDERMAL SYSTEM [Suspect]
     Indication: ARTHRALGIA
     Dosage: 25 UG/HR AND 12.5 UG/HR PATCHES
     Route: 062
  7. FENTANYL TRANSDERMAL SYSTEM [Suspect]
     Indication: BACK PAIN
     Route: 062
  8. VICODIN HP [Concomitant]
     Indication: PAIN
     Dosage: 10/660 MG TABLETS
     Route: 048
  9. NEURONTIN [Concomitant]
     Indication: NEURALGIA
     Route: 048
  10. PAXIL [Concomitant]
     Indication: DEPRESSION
     Route: 048
  11. FLOMAX [Concomitant]
     Indication: URINARY TRACT DISORDER
     Route: 048
  12. WELLBUTRIN [Concomitant]
     Indication: DEPRESSION
     Route: 048
  13. OMEPRAZOLE [Concomitant]
     Indication: DUODENAL ULCER
     Route: 048

REACTIONS (7)
  - CHRONIC OBSTRUCTIVE PULMONARY DISEASE [None]
  - DRUG ADMINISTERED AT INAPPROPRIATE SITE [None]
  - DRUG INEFFECTIVE [None]
  - FEELING JITTERY [None]
  - HOT FLUSH [None]
  - SOMNOLENCE [None]
  - WITHDRAWAL SYNDROME [None]
